FAERS Safety Report 7519735-7 (Version None)
Quarter: 2011Q2

REPORT INFORMATION
  Report Type: 
  Country: None (occurrence: None)
  Receive Date: 20110524
  Receipt Date: 20110517
  Transmission Date: 20111010
  Serious: Yes (Life-Threatening, Other)
  Sender: FDA-Public Use
  Company Number: GER/UKI/11/0018339

PATIENT
  Age: 62 Year
  Sex: Female

DRUGS (4)
  1. POTASSIUM CHLORIDE [Suspect]
     Indication: PRODUCT USED FOR UNKNOWN INDICATION
     Dosage: ORAL
     Route: 048
  2. SODIUM BICARBONATE IN PLASTIC CONTAINER [Suspect]
     Indication: PRODUCT USED FOR UNKNOWN INDICATION
     Dosage: 350 MILLIMOL, 1 IN 1 D
  3. DEXTROSE 5% [Suspect]
     Indication: PRODUCT USED FOR UNKNOWN INDICATION
  4. OMEPRAZOLE [Suspect]
     Indication: PRODUCT USED FOR UNKNOWN INDICATION
     Dosage: 20 MG,1 IN 1 D, ORAL
     Route: 048

REACTIONS (12)
  - FATIGUE [None]
  - METABOLIC ACIDOSIS [None]
  - COMA SCALE ABNORMAL [None]
  - GASTROENTERITIS [None]
  - RENAL FAILURE [None]
  - ACIDOSIS HYPERCHLORAEMIC [None]
  - DYSPNOEA [None]
  - RESPIRATORY FAILURE [None]
  - CONFUSIONAL STATE [None]
  - FALL [None]
  - HAEMODIALYSIS [None]
  - ENDOCARDITIS [None]
